FAERS Safety Report 13461867 (Version 1)
Quarter: 2017Q2

REPORT INFORMATION
  Report Type: Spontaneous
  Country: CA (occurrence: CA)
  Receive Date: 20170420
  Receipt Date: 20170420
  Transmission Date: 20170830
  Serious: Yes (Other)
  Sender: FDA-Public Use
  Company Number: CA-PFIZER INC-2017161999

PATIENT
  Age: 11 Year
  Sex: Female

DRUGS (4)
  1. PREDNISONE. [Suspect]
     Active Substance: PREDNISONE
     Indication: NON-HODGKIN^S LYMPHOMA
     Dosage: UNK (FOR 12 MONTHS UNTIL 2 WEEKS PRIOR TO THE ONSET OF HER VISUAL SYMPTOMS)
  2. METHOTREXATE SODIUM. [Suspect]
     Active Substance: METHOTREXATE SODIUM
     Indication: NON-HODGKIN^S LYMPHOMA
     Dosage: UNK (FOR 12 MONTHS UNTIL 2 WEEKS PRIOR TO THE ONSET OF HER VISUAL SYMPTOMS)
     Route: 048
  3. VINCRISTINE SULFATE. [Suspect]
     Active Substance: VINCRISTINE SULFATE
     Indication: NON-HODGKIN^S LYMPHOMA
     Dosage: UNK (FOR 12 MONTHS UNTIL 2 WEEKS PRIOR TO THE ONSET OF HER VISUAL SYMPTOMS)
  4. MERCAPTOPURINE. [Suspect]
     Active Substance: MERCAPTOPURINE
     Indication: NON-HODGKIN^S LYMPHOMA
     Dosage: UNK (FOR 12 MONTHS UNTIL 2 WEEKS PRIOR TO THE ONSET OF HER VISUAL SYMPTOMS)

REACTIONS (2)
  - Neutropenia [Unknown]
  - Encephalopathy [Unknown]
